FAERS Safety Report 13741010 (Version 1)
Quarter: 2017Q3

REPORT INFORMATION
  Report Type: Spontaneous
  Country: CR (occurrence: CR)
  Receive Date: 20170711
  Receipt Date: 20170711
  Transmission Date: 20171127
  Serious: Yes (Other)
  Sender: FDA-Public Use
  Company Number: CR-PFIZER INC-2017300610

PATIENT
  Age: 6 Decade
  Sex: Female

DRUGS (1)
  1. CELEBRA [Suspect]
     Active Substance: CELECOXIB
     Dosage: UNK

REACTIONS (3)
  - Hypersensitivity [Recovered/Resolved with Sequelae]
  - Paralysis [Unknown]
  - Obstructive airways disorder [Recovered/Resolved with Sequelae]

NARRATIVE: CASE EVENT DATE: 201707
